FAERS Safety Report 12095263 (Version 1)
Quarter: 2016Q1

REPORT INFORMATION
  Report Type: Spontaneous
  Country: GB (occurrence: GB)
  Receive Date: 20160219
  Receipt Date: 20160219
  Transmission Date: 20160526
  Serious: Yes (Other)
  Sender: FDA-Public Use
  Company Number: GB-GLAXOSMITHKLINE-GB2016020407

PATIENT
  Age: 79 Year
  Sex: Male
  Weight: 62.3 kg

DRUGS (10)
  1. INCRUSE ELLIPTA [Suspect]
     Active Substance: UMECLIDINIUM BROMIDE
     Indication: CHRONIC OBSTRUCTIVE PULMONARY DISEASE
     Route: 055
     Dates: start: 20151126, end: 20160202
  2. ASPIRIN. [Concomitant]
     Active Substance: ASPIRIN
  3. FYBOGEL [Concomitant]
     Active Substance: PLANTAGO OVATA SEED
  4. SALBUTAMOL [Concomitant]
     Active Substance: ALBUTEROL
  5. SENNA [Concomitant]
     Active Substance: SENNA LEAF\SENNOSIDES\SENNOSIDES A AND B
  6. LANSOPRAZOLE. [Concomitant]
     Active Substance: LANSOPRAZOLE
  7. QUININE [Concomitant]
     Active Substance: QUININE
  8. GAVISCON [Concomitant]
     Active Substance: ALUMINUM HYDROXIDE\MAGNESIUM CARBONATE
  9. GABAPENTIN. [Concomitant]
     Active Substance: GABAPENTIN
  10. PARACETAMOL [Concomitant]
     Active Substance: ACETAMINOPHEN

REACTIONS (2)
  - Vision blurred [Recovered/Resolved]
  - Dizziness [Recovered/Resolved]
